FAERS Safety Report 6644117-X (Version None)
Quarter: 2010Q1

REPORT INFORMATION
  Report Type: 
  Country: None (occurrence: None)
  Receive Date: 20100322
  Receipt Date: 20100310
  Transmission Date: 20100710
  Serious: Yes (Hospitalization, Other)
  Sender: FDA-Public Use
  Company Number: PHEH2010US01508

PATIENT
  Sex: Female
  Weight: 54.5 kg

DRUGS (7)
  1. EXJADE [Suspect]
     Indication: SICKLE CELL ANAEMIA
     Dosage: 1000 MG, DAILY
     Route: 048
     Dates: start: 20091230
  2. EXJADE [Suspect]
     Indication: IRON OVERLOAD
  3. FOLIC ACID [Concomitant]
     Indication: SICKLE CELL ANAEMIA
     Dosage: 1 MG DAILY
     Route: 048
  4. BENADRYL [Concomitant]
     Indication: PRURITUS
     Dosage: 25 TO 50 MG EVERY 6 HOURS PRN
  5. MORPHINE [Concomitant]
     Indication: PAIN
     Dosage: 10 MG PRN
     Route: 048
  6. CYCLOBENZAPRINE [Concomitant]
     Indication: PAIN
     Dosage: 10 MG, BID
     Route: 048
  7. METHADONE HCL [Concomitant]
     Indication: PAIN
     Dosage: 10 MG, BID
     Route: 048

REACTIONS (9)
  - ARTHRALGIA [None]
  - BACK PAIN [None]
  - DIARRHOEA [None]
  - HEPATIC CIRRHOSIS [None]
  - LEUKOCYTOSIS [None]
  - LUNG INFILTRATION [None]
  - NAUSEA [None]
  - SICKLE CELL ANAEMIA WITH CRISIS [None]
  - URINARY TRACT INFECTION [None]
